FAERS Safety Report 6810184-3 (Version None)
Quarter: 2010Q2

REPORT INFORMATION
  Report Type: 
  Country: None (occurrence: None)
  Receive Date: 20100630
  Receipt Date: 20100625
  Transmission Date: 20101027
  Serious: Yes (Hospitalization)
  Sender: FDA-Public Use
  Company Number: NL-MERCK-1006NLD00022

PATIENT
  Age: 87 Year
  Sex: Female
  Weight: 60 kg

DRUGS (4)
  1. COZAAR [Suspect]
     Route: 048
     Dates: start: 20090101, end: 20100530
  2. GLIMEPIRIDE [Concomitant]
     Route: 048
  3. ASPIRIN CALCIUM [Concomitant]
     Route: 065
  4. ESOMEPRAZOLE MAGNESIUM [Concomitant]
     Route: 048

REACTIONS (1)
  - PANCREATITIS [None]
